FAERS Safety Report 7571761-8 (Version None)
Quarter: 2011Q2

REPORT INFORMATION
  Report Type: 
  Country: None (occurrence: None)
  Receive Date: 20110624
  Receipt Date: 20110614
  Transmission Date: 20111010
  Serious: Yes (Hospitalization, Congenital Anomaly, Other)
  Sender: FDA-Public Use
  Company Number: JP-ASTRAZENECA-2011SE31960

PATIENT
  Sex: Male
  Weight: 2.9 kg

DRUGS (9)
  1. DOGMATYL [Suspect]
     Indication: DRUG EXPOSURE DURING PREGNANCY
  2. ANAFRANIL [Suspect]
     Indication: DRUG EXPOSURE DURING PREGNANCY
  3. NITRAZEPAM [Suspect]
     Indication: DRUG EXPOSURE DURING PREGNANCY
  4. HIRNAMIN [Concomitant]
  5. SEROQUEL [Suspect]
     Indication: DRUG EXPOSURE DURING PREGNANCY
  6. ROPHYPNOL [Suspect]
     Indication: DRUG EXPOSURE DURING PREGNANCY
  7. DEPAKENE [Concomitant]
  8. WINTERMIN [Suspect]
     Indication: DRUG EXPOSURE DURING PREGNANCY
  9. RETICOLAN [Suspect]
     Indication: DRUG EXPOSURE DURING PREGNANCY

REACTIONS (4)
  - FAILURE TO THRIVE [None]
  - TREMOR [None]
  - PLACENTAL DISORDER [None]
  - MATERNAL DRUGS AFFECTING FOETUS [None]
